FAERS Safety Report 14738842 (Version 1)
Quarter: 2018Q2

REPORT INFORMATION
  Report Type: Report from Study
  Country: IT (occurrence: IT)
  Receive Date: 20180409
  Receipt Date: 20180409
  Transmission Date: 20180711
  Serious: Yes (Other)
  Sender: FDA-Public Use
  Company Number: IT-BEH-2018089488

PATIENT

DRUGS (2)
  1. HUMAN IMMUNOGLOBULIN SC (GENERIC) [Suspect]
     Active Substance: HUMAN IMMUNOGLOBULIN G
     Indication: PRODUCT USED FOR UNKNOWN INDICATION
     Dosage: 80 G, QMT, 10G TWICE WEEKLY
     Route: 058
  2. HUMAN IMMUNOGLOBULIN IV (INN) [Suspect]
     Active Substance: HUMAN IMMUNOGLOBULIN G
     Indication: PRODUCT USED FOR UNKNOWN INDICATION
     Dosage: UNK, QMT, 2G/KG
     Route: 042

REACTIONS (3)
  - Skin lesion [Unknown]
  - Injection site haemorrhage [Unknown]
  - Hypertensive crisis [Unknown]
